FAERS Safety Report 9938354 (Version 3)
Quarter: 2015Q1

REPORT INFORMATION
  Report Type: Report from Study
  Country: US (occurrence: US)
  Receive Date: 20140303
  Receipt Date: 20150216
  Transmission Date: 20150721
  Serious: No
  Sender: FDA-Public Use
  Company Number: US-ABBVIE-12P-163-1016538-00

PATIENT
  Age: 28 Year
  Sex: Female
  Weight: 76.27 kg

DRUGS (18)
  1. CAFFEINE. [Concomitant]
     Active Substance: CAFFEINE
     Indication: PRODUCT USED FOR UNKNOWN INDICATION
     Dosage: COKE
     Route: 048
     Dates: start: 20071102, end: 20080501
  2. PREDNISONE. [Concomitant]
     Active Substance: PREDNISONE
     Indication: COLITIS ULCERATIVE
     Route: 048
     Dates: start: 20071102, end: 20080731
  3. ESTRACE [Concomitant]
     Active Substance: ESTRADIOL
     Indication: PREGNANCY
     Route: 048
     Dates: start: 20071102, end: 20080103
  4. FENTANYL. [Concomitant]
     Active Substance: FENTANYL
     Indication: IN VITRO FERTILISATION
     Dates: start: 20071114, end: 20071114
  5. LUPRON [Concomitant]
     Active Substance: LEUPROLIDE ACETATE
     Route: 048
     Dates: start: 20071104, end: 20071117
  6. HUMIRA [Suspect]
     Active Substance: ADALIMUMAB
     Indication: COLITIS ULCERATIVE
     Route: 050
     Dates: start: 20071102, end: 20080708
  7. CAFFEINE. [Concomitant]
     Active Substance: CAFFEINE
     Dosage: 1 SERVING ONCE A MONTH
     Route: 048
     Dates: start: 20080502, end: 20080731
  8. BABY ASPIRIN [Concomitant]
     Active Substance: ASPIRIN
     Indication: PREGNANCY
     Route: 048
     Dates: start: 20071102, end: 20080708
  9. LUPRON [Concomitant]
     Active Substance: LEUPROLIDE ACETATE
     Indication: IN VITRO FERTILISATION
     Route: 048
     Dates: start: 20071102, end: 20071103
  10. TEA [Concomitant]
     Active Substance: TEA LEAF
     Indication: PRODUCT USED FOR UNKNOWN INDICATION
     Dosage: 1 SERVING ONCE A WEEK
     Route: 048
     Dates: start: 20071102, end: 20080731
  11. PROGESTERONE. [Concomitant]
     Active Substance: PROGESTERONE
     Indication: PREGNANCY
     Dosage: 1 SHOT ONCE DAILY
     Route: 050
     Dates: start: 20071102, end: 20080103
  12. FISH OIL [Concomitant]
     Active Substance: FISH OIL
     Indication: COLITIS
     Dosage: 1 PILL ONCE DAILY
     Route: 048
     Dates: start: 20071102, end: 20080731
  13. PRENATAL VITAMINS [Concomitant]
     Active Substance: VITAMINS
     Indication: PRODUCT USED FOR UNKNOWN INDICATION
     Dosage: 1 PILL ONCE DAILY
     Route: 048
     Dates: start: 20071102, end: 20080731
  14. FOLIC ACID. [Concomitant]
     Active Substance: FOLIC ACID
     Indication: FOLATE DEFICIENCY
     Route: 048
     Dates: start: 20071102, end: 20080731
  15. PROGESTERONE. [Concomitant]
     Active Substance: PROGESTERONE
     Route: 048
     Dates: start: 20071102, end: 20080110
  16. PROPOFOL. [Concomitant]
     Active Substance: PROPOFOL
     Indication: IN VITRO FERTILISATION
     Dates: start: 20071114, end: 20071114
  17. TUMS [Concomitant]
     Active Substance: CALCIUM CARBONATE
     Indication: DYSPEPSIA
     Dosage: 6.5 PILLS ONCE DAILY
     Route: 048
     Dates: start: 20071102, end: 20080103
  18. VERSED [Concomitant]
     Active Substance: MIDAZOLAM HYDROCHLORIDE
     Indication: IN VITRO FERTILISATION
     Dates: start: 20071114, end: 20071114

REACTIONS (5)
  - Vaginal haemorrhage [Recovered/Resolved]
  - Headache [Recovered/Resolved]
  - Dyspepsia [Unknown]
  - Discomfort [Recovered/Resolved]
  - Glucose tolerance test abnormal [Unknown]

NARRATIVE: CASE EVENT DATE: 20080211
